FAERS Safety Report 20797073 (Version 1)
Quarter: 2022Q2

REPORT INFORMATION
  Report Type: Report from Study
  Country: IN (occurrence: IN)
  Receive Date: 20220506
  Receipt Date: 20220506
  Transmission Date: 20220721
  Serious: Yes (Death)
  Sender: FDA-Public Use
  Company Number: IN-NOVARTISPH-PHHY2017IN060358

PATIENT
  Age: 54 Year
  Sex: Male

DRUGS (1)
  1. GLIVEC [Suspect]
     Active Substance: IMATINIB MESYLATE
     Indication: Chronic myeloid leukaemia
     Dosage: 400 MG (1 X 400MG TABLET)
     Route: 065

REACTIONS (7)
  - Death [Fatal]
  - Eating disorder [Unknown]
  - Urine analysis abnormal [Unknown]
  - Constipation [Unknown]
  - Ocular hyperaemia [Unknown]
  - Asthenia [Unknown]
  - Pain in extremity [Unknown]

NARRATIVE: CASE EVENT DATE: 20170324
